FAERS Safety Report 7015532-X (Version None)
Quarter: 2010Q3

REPORT INFORMATION
  Report Type: 
  Country: None (occurrence: None)
  Receive Date: 20100923
  Receipt Date: 20100909
  Transmission Date: 20110219
  Serious: Yes (Hospitalization)
  Sender: FDA-Public Use
  Company Number: LTI2010A00198

PATIENT
  Age: 61 Year
  Sex: Male

DRUGS (13)
  1. ACTOPLUS MET [Suspect]
     Indication: TYPE 2 DIABETES MELLITUS
     Dosage: 2 DF (1 DF, 2 IN 1 D) ORAL
     Route: 048
     Dates: start: 20090101
  2. INDAPAMIDE [Suspect]
     Indication: HYPERTENSION
     Dosage: 1 DF (1 DF, 1 IN 1 D) ORAL
     Route: 048
     Dates: start: 20090101
  3. ATACAND [Suspect]
     Indication: HYPERTENSION
     Dosage: 16 MG (16 MG, 1 IN 1 D) ORAL
     Route: 048
     Dates: start: 20090101
  4. DISCOTRINE (GLYCERYL TRINITRATE) [Concomitant]
  5. CORDARONE [Concomitant]
  6. GLUCOPHAGE [Concomitant]
  7. REPAGLINIDE [Concomitant]
  8. DILTIAZEM HYDROCHLORIDE [Concomitant]
  9. IKOREL (NICORANDIL) [Concomitant]
  10. PLAVIX [Concomitant]
  11. SINGULAIR [Concomitant]
  12. SERETIDE (FLUTICASONE PROPIONATE, SALMETEROL XINAFOATE) [Concomitant]
  13. FORADIL [Concomitant]

REACTIONS (2)
  - ECZEMA [None]
  - PSORIASIS [None]
